FAERS Safety Report 22175011 (Version 1)
Quarter: 2023Q2

REPORT INFORMATION
  Report Type: Other
  Country: GB (occurrence: GB)
  Receive Date: 20230405
  Receipt Date: 20230405
  Transmission Date: 20230722
  Serious: Yes (Disabling, Other)
  Sender: FDA-Public Use
  Company Number: None

PATIENT
  Sex: Female
  Weight: 125 kg

DRUGS (4)
  1. DOXYCYCLINE [Suspect]
     Active Substance: DOXYCYCLINE
     Indication: Adverse drug reaction
     Dosage: 100 MILLIGRAM, QD (100MG ONE A DAY; TABLET)
     Route: 065
  2. DOXYCYCLINE [Suspect]
     Active Substance: DOXYCYCLINE
     Indication: Asthma
  3. PREDNISONE [Suspect]
     Active Substance: PREDNISONE
     Indication: Adverse drug reaction
     Dosage: 30 MILLIGRAM, QD (30MG PER DAY (5MGX6); TABLET)
     Route: 065
  4. PREDNISONE [Suspect]
     Active Substance: PREDNISONE
     Indication: Asthma

REACTIONS (7)
  - Dizziness [None]
  - Abdominal pain upper [None]
  - Blood pressure increased [None]
  - Insomnia [None]
  - Irritability [None]
  - Nausea [None]
  - Diarrhoea [None]
